FAERS Safety Report 6909465-4 (Version None)
Quarter: 2010Q3

REPORT INFORMATION
  Report Type: 
  Country: None (occurrence: None)
  Receive Date: 20100805
  Receipt Date: 20100728
  Transmission Date: 20110219
  Serious: Yes (Hospitalization, Other)
  Sender: FDA-Public Use
  Company Number: CA-CELGENEUS-028-21880-10052158

PATIENT
  Age: 74 Year
  Sex: Male

DRUGS (9)
  1. REVLIMID [Suspect]
     Indication: MULTIPLE MYELOMA
     Route: 048
     Dates: start: 20100423, end: 20100610
  2. CYCLOPHOSPHAMIDE [Suspect]
     Indication: PRODUCT USED FOR UNKNOWN INDICATION
     Route: 048
     Dates: start: 20100401, end: 20100527
  3. PREDNISONE [Suspect]
     Indication: PRODUCT USED FOR UNKNOWN INDICATION
     Route: 065
  4. AMIODARONE HCL [Concomitant]
     Indication: ATRIAL FIBRILLATION
     Route: 065
     Dates: start: 20100529, end: 20100623
  5. AMIODARONE HCL [Concomitant]
     Route: 065
     Dates: start: 20100529, end: 20100623
  6. DIGOXIN [Concomitant]
     Indication: PRODUCT USED FOR UNKNOWN INDICATION
     Route: 048
     Dates: start: 20100603
  7. DIGOXIN [Concomitant]
     Route: 048
     Dates: start: 20100720
  8. DILTIAZEM [Concomitant]
     Indication: PRODUCT USED FOR UNKNOWN INDICATION
     Dosage: 30
     Route: 048
     Dates: start: 20100501, end: 20100504
  9. SOTALOL HCL [Concomitant]
     Indication: PRODUCT USED FOR UNKNOWN INDICATION
     Route: 048
     Dates: start: 20100623

REACTIONS (6)
  - ATRIAL FIBRILLATION [None]
  - BLOOD PRESSURE ABNORMAL [None]
  - CARDIAC FAILURE CONGESTIVE [None]
  - FALL [None]
  - HUMERUS FRACTURE [None]
  - INFECTION [None]
